FAERS Safety Report 5826915-5 (Version None)
Quarter: 2008Q3

REPORT INFORMATION
  Report Type: 
  Country: None (occurrence: None)
  Receive Date: 20080729
  Receipt Date: 20080729
  Transmission Date: 20090109
  Serious: Yes (Other)
  Sender: FDA-Public Use
  Company Number: None

PATIENT
  Age: 61 Year
  Sex: Female
  Weight: 86.1834 kg

DRUGS (3)
  1. CIPROFLOXACIN [Suspect]
     Indication: BACK PAIN
     Dosage: 500 MG TWICE/DAY PO, 4 1/2 DAYS
     Route: 048
     Dates: start: 20080624, end: 20080628
  2. CIPROFLOXACIN [Suspect]
     Indication: BLOOD URINE PRESENT
     Dosage: 500 MG TWICE/DAY PO, 4 1/2 DAYS
     Route: 048
     Dates: start: 20080624, end: 20080628
  3. CIPROFLOXACIN [Suspect]
     Indication: URINE BILIRUBIN INCREASED
     Dosage: 500 MG TWICE/DAY PO, 4 1/2 DAYS
     Route: 048
     Dates: start: 20080624, end: 20080628

REACTIONS (6)
  - ARTHRALGIA [None]
  - GAIT DISTURBANCE [None]
  - ILL-DEFINED DISORDER [None]
  - NECK PAIN [None]
  - PAIN IN JAW [None]
  - TOOTHACHE [None]
